FAERS Safety Report 15430721 (Version 1)
Quarter: 2018Q3

REPORT INFORMATION
  Report Type: Spontaneous
  Country: US (occurrence: US)
  Receive Date: 20180921
  Receipt Date: 20180921
  Transmission Date: 20181010
  Serious: Yes (Other)
  Sender: FDA-Public Use
  Company Number: None

PATIENT
  Age: 38 Year
  Sex: Female
  Weight: 77.11 kg

DRUGS (1)
  1. BUPRENORPHINE AND NALOXONE [Suspect]
     Active Substance: BUPRENORPHINE\NALOXONE
     Dates: start: 20180829, end: 20180920

REACTIONS (3)
  - Drug effect incomplete [None]
  - Drug withdrawal syndrome [None]
  - Product solubility abnormal [None]

NARRATIVE: CASE EVENT DATE: 20180920
